FAERS Safety Report 4447838-2 (Version None)
Quarter: 2004Q3

REPORT INFORMATION
  Report Type: 
  Country: None (occurrence: None)
  Receive Date: 20040812
  Receipt Date: 20040528
  Transmission Date: 20050211
  Serious: No
  Sender: FDA-Public Use
  Company Number: USA040568734

PATIENT
  Age: 30 Year
  Sex: Male

DRUGS (1)
  1. CIALIS [Suspect]
     Dosage: 20 MG DAY

REACTIONS (2)
  - INTENTIONAL OVERDOSE [None]
  - THERAPEUTIC RESPONSE DECREASED [None]
